FAERS Safety Report 26028253 (Version 1)
Quarter: 2025Q4

REPORT INFORMATION
  Report Type: Spontaneous
  Country: US (occurrence: US)
  Receive Date: 20251111
  Receipt Date: 20251111
  Transmission Date: 20260117
  Serious: No
  Sender: Alora Pharma
  Company Number: US-ACELLA PHARMACEUTICALS, LLC-2025ALO00100

PATIENT

DRUGS (1)
  1. CICLOPIROX [Suspect]
     Active Substance: CICLOPIROX
     Dosage: UNK, TO THE NAILS
     Route: 061

REACTIONS (3)
  - Product residue present [Unknown]
  - Product quality issue [Unknown]
  - Product physical consistency issue [Unknown]
